FAERS Safety Report 6590027-6 (Version None)
Quarter: 2010Q1

REPORT INFORMATION
  Report Type: 
  Country: None (occurrence: None)
  Receive Date: 20100219
  Receipt Date: 20100209
  Transmission Date: 20100710
  Serious: Yes (Other)
  Sender: FDA-Public Use
  Company Number: PHHY2010DE07729

PATIENT

DRUGS (3)
  1. RASILEZ HCT [Suspect]
     Dosage: UNK
     Dates: start: 20091217
  2. METOPROLOL SUCCINATE [Concomitant]
     Dosage: 0.5 DF, BID
     Dates: start: 20100107
  3. MARCUMAR [Concomitant]

REACTIONS (1)
  - ATRIAL FIBRILLATION [None]
